FAERS Safety Report 10226426 (Version 1)
Quarter: 2014Q2

REPORT INFORMATION
  Report Type: Spontaneous
  Country: US (occurrence: US)
  Receive Date: 20140609
  Receipt Date: 20140609
  Transmission Date: 20141212
  Serious: No
  Sender: FDA-Public Use
  Company Number: US-AMGEN INC.-USASP2013064247

PATIENT
  Age: 75 Year
  Sex: Female

DRUGS (3)
  1. EPOGEN [Suspect]
     Indication: RENAL FAILURE CHRONIC
     Dosage: 1200 UNIT, 3 TIMES/WK
     Route: 065
     Dates: start: 20130818
  2. VENOFER [Concomitant]
     Dosage: UNK
  3. HEPARIN                            /00027704/ [Concomitant]
     Dosage: UNK

REACTIONS (3)
  - Poor peripheral circulation [Unknown]
  - Breast tenderness [Not Recovered/Not Resolved]
  - Wound [Unknown]
